FAERS Safety Report 5825718-5 (Version None)
Quarter: 2008Q3

REPORT INFORMATION
  Report Type: 
  Country: None (occurrence: None)
  Receive Date: 20080723
  Receipt Date: 20080711
  Transmission Date: 20090109
  Serious: Yes (Hospitalization)
  Sender: FDA-Public Use
  Company Number: 2008SP013848

PATIENT
  Age: 52 Year
  Sex: Female
  Weight: 60.4 kg

DRUGS (3)
  1. TEMOZOLOMIDE [Suspect]
     Indication: GLIOBLASTOMA
     Dosage: 170 MG; ; PO
     Route: 048
     Dates: start: 20080211, end: 20080611
  2. DEXAMETHASON /00016001/ [Concomitant]
  3. LEVOMEPROMAZIN /00038601/ [Concomitant]

REACTIONS (3)
  - EPISTAXIS [None]
  - HAEMOGLOBIN DECREASED [None]
  - PLATELET COUNT DECREASED [None]
